FAERS Safety Report 14099356 (Version 1)
Quarter: 2017Q4

REPORT INFORMATION
  Report Type: Other
  Country: JP (occurrence: JP)
  Receive Date: 20171017
  Receipt Date: 20171017
  Transmission Date: 20180321
  Serious: Yes (Hospitalization)
  Sender: FDA-Public Use
  Company Number: JP-EMD SERONO-8189973

PATIENT
  Age: 4 Decade
  Sex: Female

DRUGS (2)
  1. GONAL-F RFF [Suspect]
     Active Substance: FOLLITROPIN
     Indication: ASSISTED FERTILISATION
     Route: 058
  2. CHORIOGONADOTROPIN ALFA [Suspect]
     Active Substance: CHORIOGONADOTROPIN ALFA
     Indication: ASSISTED FERTILISATION

REACTIONS (2)
  - Ectopic pregnancy [Recovered/Resolved]
  - Multiple pregnancy [Recovered/Resolved]
